FAERS Safety Report 20720492 (Version 1)
Quarter: 2022Q2

REPORT INFORMATION
  Report Type: Spontaneous
  Country: CN (occurrence: CN)
  Receive Date: 20220418
  Receipt Date: 20220418
  Transmission Date: 20220720
  Serious: Yes (Hospitalization, Other)
  Sender: FDA-Public Use
  Company Number: CN-MLMSERVICE-20220330-3463567-1

PATIENT
  Age: 29 Year
  Sex: Male

DRUGS (6)
  1. CYCLOSPORINE [Suspect]
     Active Substance: CYCLOSPORINE
     Indication: Prophylaxis against graft versus host disease
     Route: 042
     Dates: start: 2020
  2. PREDNISONE [Suspect]
     Active Substance: PREDNISONE
     Indication: Prophylaxis against graft versus host disease
     Dates: start: 202001
  3. VORICONAZOLE [Concomitant]
     Active Substance: VORICONAZOLE
     Indication: Antifungal prophylaxis
     Dates: start: 2020
  4. GANCICLOVIR [Concomitant]
     Active Substance: GANCICLOVIR
     Indication: Cytomegalovirus infection
     Dates: start: 2019
  5. GANCICLOVIR [Concomitant]
     Active Substance: GANCICLOVIR
     Indication: Herpes simplex
  6. SULFAMETHOXAZOLE [Concomitant]
     Active Substance: SULFAMETHOXAZOLE
     Indication: Antifungal prophylaxis
     Dates: start: 2020

REACTIONS (11)
  - Sepsis [Recovered/Resolved]
  - Herpes zoster [Recovered/Resolved]
  - Human herpesvirus 8 infection [Recovered/Resolved]
  - BK virus infection [Recovered/Resolved]
  - Cystitis haemorrhagic [Recovered/Resolved]
  - Haematuria [Recovered/Resolved]
  - Varicella zoster virus infection [Recovered/Resolved]
  - Kaposi^s sarcoma [Recovered/Resolved]
  - Neoplasm [Recovered/Resolved]
  - Hypoxia [Recovered/Resolved]
  - Pneumonia [Recovered/Resolved]

NARRATIVE: CASE EVENT DATE: 20200101
